FAERS Safety Report 7555778-5 (Version None)
Quarter: 2011Q2

REPORT INFORMATION
  Report Type: 
  Country: None (occurrence: None)
  Receive Date: 20110618
  Receipt Date: 20110602
  Transmission Date: 20111010
  Serious: Yes (Other)
  Sender: FDA-Public Use
  Company Number: GB-BAYER-2011-049037

PATIENT
  Sex: Male

DRUGS (1)
  1. RENNIE PEPPERMINT [Suspect]

REACTIONS (1)
  - OSTEOPOROSIS [None]
